FAERS Safety Report 9855821 (Version 6)
Quarter: 2014Q4

REPORT INFORMATION
  Report Type: Report from Study
  Country: CA (occurrence: CA)
  Receive Date: 20140130
  Receipt Date: 20141021
  Transmission Date: 20150529
  Serious: Yes (Death, Other)
  Sender: FDA-Public Use
  Company Number: PHHY2014CA009870

PATIENT
  Age: 74 Year
  Sex: Male

DRUGS (4)
  1. SANDOSTATIN [Suspect]
     Active Substance: OCTREOTIDE ACETATE
     Indication: DIARRHOEA
  2. CHEMOTHERAPEUTICS NOS [Concomitant]
     Active Substance: UNSPECIFIED INGREDIENT
     Indication: PRODUCT USED FOR UNKNOWN INDICATION
     Route: 065
  3. SANDOSTATIN LAR DEPOT [Suspect]
     Active Substance: OCTREOTIDE ACETATE
     Indication: ADENOCARCINOMA OF COLON
     Dosage: 30 MG, EVERY FOUR WEEKS
     Route: 030
     Dates: start: 20131227, end: 20140320
  4. SANDOSTATIN [Suspect]
     Active Substance: OCTREOTIDE ACETATE
     Indication: ADENOCARCINOMA OF COLON
     Dosage: 250 UG,
     Route: 058
     Dates: start: 20131107

REACTIONS (11)
  - Death [Fatal]
  - Blood alkaline phosphatase increased [Unknown]
  - Hepatic enzyme increased [Unknown]
  - Jaundice [Not Recovered/Not Resolved]
  - Alanine aminotransferase increased [Unknown]
  - Aspartate aminotransferase increased [Unknown]
  - Injection site pain [Unknown]
  - Blood bilirubin increased [Unknown]
  - Diarrhoea [Unknown]
  - Injection site mass [Recovered/Resolved]
  - Gamma-glutamyltransferase increased [Unknown]

NARRATIVE: CASE EVENT DATE: 201406
